FAERS Safety Report 24453185 (Version 2)
Quarter: 2024Q4

REPORT INFORMATION
  Report Type: Report from Study
  Country: US (occurrence: US)
  Receive Date: 20241017
  Receipt Date: 20241018
  Transmission Date: 20250115
  Serious: No
  Sender: ROCHE
  Company Number: US-ROCHE-3106581

PATIENT
  Age: 73 Year
  Sex: Female

DRUGS (12)
  1. RITUXAN [Suspect]
     Active Substance: RITUXIMAB
     Indication: Noninfective chorioretinitis
     Route: 041
     Dates: start: 20220510, end: 20220524
  2. RITUXAN [Suspect]
     Active Substance: RITUXIMAB
     Indication: Thrombocytopenia
  3. ACYCLOVIR [Concomitant]
     Active Substance: ACYCLOVIR
  4. ASPIRIN [Concomitant]
     Active Substance: ASPIRIN
  5. IMURAN [Concomitant]
     Active Substance: AZATHIOPRINE
  6. HYGROTON [Concomitant]
     Active Substance: CHLORTHALIDONE
  7. WELCHOL [Concomitant]
     Active Substance: COLESEVELAM HYDROCHLORIDE
  8. BENTYL [Concomitant]
     Active Substance: DICYCLOMINE HYDROCHLORIDE
  9. CARDURA [Concomitant]
     Active Substance: DOXAZOSIN MESYLATE
  10. SYNTHROID [Concomitant]
     Active Substance: LEVOTHYROXINE SODIUM
  11. NAPROSYN [Concomitant]
     Active Substance: NAPROXEN
  12. MAVIK [Concomitant]
     Active Substance: TRANDOLAPRIL

REACTIONS (2)
  - Off label use [Unknown]
  - No adverse event [Unknown]
